FAERS Safety Report 6883443-6 (Version None)
Quarter: 2010Q3

REPORT INFORMATION
  Report Type: 
  Country: None (occurrence: None)
  Receive Date: 20100729
  Receipt Date: 20100720
  Transmission Date: 20110219
  Serious: Yes (Hospitalization)
  Sender: FDA-Public Use
  Company Number: GXKR2010GB08084

PATIENT
  Age: 41 Year
  Sex: Female

DRUGS (5)
  1. CLONAZEPAM [Suspect]
     Indication: INTENTIONAL OVERDOSE
     Route: 065
  2. OXAZEPAM [Suspect]
     Indication: INTENTIONAL OVERDOSE
     Route: 065
  3. PROPRANOLOL [Suspect]
     Indication: INTENTIONAL OVERDOSE
     Route: 065
  4. VALPROATE SODIUM (NGX) [Suspect]
     Indication: INTENTIONAL OVERDOSE
     Route: 065
  5. FLUPENTIXOL DIHYDROCHLORIDE [Suspect]
     Indication: INTENTIONAL OVERDOSE
     Route: 065

REACTIONS (8)
  - AGITATION [None]
  - BRADYCARDIA [None]
  - CONSCIOUSNESS FLUCTUATING [None]
  - DISORIENTATION [None]
  - DRUG TOXICITY [None]
  - HYPERAMMONAEMIA [None]
  - MULTIPLE DRUG OVERDOSE INTENTIONAL [None]
  - PLATELET COUNT DECREASED [None]
